FAERS Safety Report 12096220 (Version 2)
Quarter: 2017Q1

REPORT INFORMATION
  Report Type: Other
  Country: US (occurrence: US)
  Receive Date: 20160220
  Receipt Date: 20170210
  Transmission Date: 20170428
  Serious: No
  Sender: FDA-Public Use
  Company Number: US-ACORDA-ACO_109824_2015

PATIENT
  Age: 48 Year
  Sex: Female

DRUGS (1)
  1. AMPYRA [Suspect]
     Active Substance: DALFAMPRIDINE
     Indication: PRODUCT USED FOR UNKNOWN INDICATION
     Dosage: 10 MG, BID
     Route: 048
     Dates: start: 20140606

REACTIONS (4)
  - Extra dose administered [Recovered/Resolved]
  - Cataract [Unknown]
  - Eye disorder [Unknown]
  - Nightmare [Unknown]

NARRATIVE: CASE EVENT DATE: 20150605
